FAERS Safety Report 9911909 (Version 1)
Quarter: 2014Q1

REPORT INFORMATION
  Report Type: Spontaneous
  Country: US (occurrence: US)
  Receive Date: 20140219
  Receipt Date: 20140219
  Transmission Date: 20141002
  Serious: No
  Sender: FDA-Public Use
  Company Number: US-MYLANLABS-2013S1017897

PATIENT
  Age: 33 Year
  Sex: Female
  Weight: 101.13 kg

DRUGS (4)
  1. EPIPEN [Suspect]
     Dosage: 0.3 MG, AS NEEDED
     Dates: start: 20130801, end: 20130801
  2. ALBUTEROL [Concomitant]
     Indication: ASTHMA
     Dosage: UNK
     Route: 055
  3. PROTONIX [Concomitant]
     Indication: DYSPEPSIA
     Dosage: HEARTBURN AND DYSPEPSIA
     Route: 048
  4. HYDROCHLOROTHIAZIDE [Concomitant]
     Indication: DIURETIC THERAPY
     Dosage: UNK
     Route: 048

REACTIONS (4)
  - Accidental exposure to product [Recovered/Resolved]
  - Energy increased [Recovered/Resolved]
  - Therapeutic response unexpected [Recovered/Resolved]
  - Product quality issue [None]
